FAERS Safety Report 10227146 (Version 1)
Quarter: 2014Q2

REPORT INFORMATION
  Report Type: Spontaneous
  Country: US (occurrence: None)
  Receive Date: 20140609
  Receipt Date: 20140609
  Transmission Date: 20141212
  Serious: No
  Sender: FDA-Public Use
  Company Number: None

PATIENT
  Age: 87 Year
  Sex: Female

DRUGS (1)
  1. FORTEO [Suspect]
     Dosage: 20MCG, DAILY, SQ
     Route: 058
     Dates: start: 20140501, end: 20140605

REACTIONS (4)
  - Dizziness [None]
  - Swollen tongue [None]
  - Visual impairment [None]
  - Hearing impaired [None]
